FAERS Safety Report 7788627-0 (Version None)
Quarter: 2011Q3

REPORT INFORMATION
  Report Type: 
  Country: None (occurrence: None)
  Receive Date: 20110930
  Receipt Date: 20110922
  Transmission Date: 20111222
  Serious: Yes (Hospitalization)
  Sender: FDA-Public Use
  Company Number: US-BRISTOL-MYERS SQUIBB COMPANY-15755135

PATIENT
  Age: 88 Year
  Sex: Female
  Weight: 50 kg

DRUGS (16)
  1. FUROSEMIDE [Concomitant]
  2. WARFARIN SODIUM [Suspect]
     Indication: ATRIAL FIBRILLATION
     Dosage: 1.5TABS/D 21APR-12MAY11,7.5MG 20MAY-23MAY11,2.5MG 20MAY11-UN,5MG,3/WK 20MAY11-UN,7.5MG,4/WK
     Dates: start: 20030101
  3. MACRODANTIN [Suspect]
     Indication: URINARY TRACT INFECTION
     Route: 048
     Dates: start: 20110513, end: 20110514
  4. OMEPRAZOLE [Concomitant]
  5. DIGOXIN [Concomitant]
  6. PHENAZOPYRIDINE HCL TAB [Suspect]
     Indication: URINARY TRACT INFECTION
     Dosage: TABS
     Dates: start: 20110513, end: 20110513
  7. POTASSIUM CHLORIDE [Concomitant]
  8. DIGOXIN [Concomitant]
  9. DILTIAZEM HCL [Concomitant]
  10. DILTIAZEM HCL [Concomitant]
  11. ATENOLOL [Concomitant]
  12. POTASSIUM [Concomitant]
  13. OMEPRAZOLE [Concomitant]
  14. ATENOLOL [Concomitant]
  15. FUROSEMIDE [Concomitant]
  16. SEPTRA DS [Concomitant]
     Indication: URINARY TRACT INFECTION
     Dates: start: 20110513, end: 20110513

REACTIONS (16)
  - PRESYNCOPE [None]
  - ATROPHY [None]
  - INTERNATIONAL NORMALISED RATIO FLUCTUATION [None]
  - NAUSEA [None]
  - WEIGHT DECREASED [None]
  - ECCHYMOSIS [None]
  - BLOOD URINE PRESENT [None]
  - HYPONATRAEMIA [None]
  - DECREASED APPETITE [None]
  - URINARY TRACT INFECTION [None]
  - VOMITING [None]
  - ARRHYTHMIA [None]
  - GAIT DISTURBANCE [None]
  - DYSPEPSIA [None]
  - ABDOMINAL DISCOMFORT [None]
  - ASTHENIA [None]
